FAERS Safety Report 16473599 (Version 2)
Quarter: 2019Q3

REPORT INFORMATION
  Report Type: Spontaneous
  Country: US (occurrence: US)
  Receive Date: 20190625
  Receipt Date: 20190711
  Transmission Date: 20191004
  Serious: No
  Sender: FDA-Public Use
  Company Number: US-TASMAN PHARMA, INC.-2019TSM00048

PATIENT
  Sex: Female

DRUGS (1)
  1. VERSACLOZ [Suspect]
     Active Substance: CLOZAPINE

REACTIONS (1)
  - No adverse event [Unknown]
